FAERS Safety Report 14495640 (Version 1)
Quarter: 2018Q1

REPORT INFORMATION
  Report Type: Spontaneous
  Country: NL (occurrence: NL)
  Receive Date: 20180206
  Receipt Date: 20180206
  Transmission Date: 20180509
  Serious: Yes (Other)
  Sender: FDA-Public Use
  Company Number: NL-009507513-1802NLD001434

PATIENT
  Age: 71 Year
  Sex: Male

DRUGS (3)
  1. CASPOFUNGIN ACETATE. [Suspect]
     Active Substance: CASPOFUNGIN ACETATE
     Indication: OESOPHAGEAL CANDIDIASIS
     Dosage: 70 MG, DAILY (FOR TWO WEEKS)
  2. AMPHOTERICIN B. [Concomitant]
     Active Substance: AMPHOTERICIN B
     Indication: OESOPHAGEAL CANDIDIASIS
     Dosage: 400 MG, SIX TIMES (FOR TWO WEEKS)
  3. OMEPRAZOLE. [Concomitant]
     Active Substance: OMEPRAZOLE
     Indication: CHEST PAIN
     Dosage: 40 MG, UNK

REACTIONS (1)
  - Drug ineffective [Not Recovered/Not Resolved]
